FAERS Safety Report 8297840-8 (Version None)
Quarter: 2012Q2

REPORT INFORMATION
  Report Type: 
  Country: None (occurrence: None)
  Receive Date: 20120419
  Receipt Date: 20120413
  Transmission Date: 20120825
  Serious: No
  Sender: FDA-Public Use
  Company Number: US-B.I. PHARMACEUTICALS,INC./RIDGEFIELD-2012-BP-07049BP

PATIENT
  Age: 68 Year
  Sex: Male

DRUGS (8)
  1. MIRAPEX [Suspect]
     Indication: PARKINSON'S DISEASE
     Dosage: 0.375 MG
     Route: 048
     Dates: start: 20120215, end: 20120325
  2. MIRAPEX [Suspect]
     Dosage: 0.375 MG
     Route: 048
     Dates: start: 20120403
  3. MIRAPEX [Suspect]
     Dosage: 0.75 MG
     Route: 048
     Dates: start: 20120325, end: 20120403
  4. COREG CR [Concomitant]
     Indication: HYPERTENSION
     Route: 048
  5. TRAMADOL [Concomitant]
     Indication: MYALGIA
     Route: 048
  6. KLONOPIN [Concomitant]
     Indication: INSOMNIA
     Dosage: 1.75 MG
     Route: 048
  7. LOSARTAN [Concomitant]
     Indication: HYPERTENSION
     Route: 048
  8. VICOPROFEN [Concomitant]
     Indication: MYALGIA
     Route: 048

REACTIONS (3)
  - INSOMNIA [None]
  - IRRITABILITY [None]
  - CONFUSIONAL STATE [None]
